FAERS Safety Report 24288590 (Version 2)
Quarter: 2024Q4

REPORT INFORMATION
  Report Type: Spontaneous
  Country: US (occurrence: US)
  Receive Date: 20240906
  Receipt Date: 20241021
  Transmission Date: 20250115
  Serious: No
  Sender: GLAXOSMITHKLINE
  Company Number: US-GSK-US2024107186

PATIENT
  Sex: Female

DRUGS (1)
  1. NUCALA [Suspect]
     Active Substance: MEPOLIZUMAB
     Indication: Unknown immunisation status
     Dosage: UNK

REACTIONS (3)
  - Dyspnoea [Unknown]
  - Wheezing [Unknown]
  - Product use in unapproved indication [Unknown]
